FAERS Safety Report 22070427 (Version 1)
Quarter: 2023Q1

REPORT INFORMATION
  Report Type: Spontaneous
  Country: US (occurrence: None)
  Receive Date: 20230306
  Receipt Date: 20230306
  Transmission Date: 20230418
  Serious: No
  Sender: FDA-Public Use
  Company Number: None

PATIENT
  Age: 58 Year
  Sex: Female

DRUGS (5)
  1. REPATHA [Suspect]
     Active Substance: EVOLOCUMAB
     Indication: Hyperlipidaemia
     Dosage: OTHER FREQUENCY : 28 DAYS;?
     Route: 058
     Dates: start: 20191219
  2. ARICEPT [Concomitant]
     Active Substance: DONEPEZIL HYDROCHLORIDE
  3. TRAZODONE [Concomitant]
     Active Substance: TRAZODONE HYDROCHLORIDE
  4. TERBINAFINE [Concomitant]
     Active Substance: TERBINAFINE
  5. MIDODRINE [Concomitant]
     Active Substance: MIDODRINE

REACTIONS (3)
  - Injection site bruising [None]
  - Injection site pain [None]
  - Injection site reaction [None]

NARRATIVE: CASE EVENT DATE: 20230303
